FAERS Safety Report 9133431 (Version 1)
Quarter: 2013Q1

REPORT INFORMATION
  Report Type: Spontaneous
  Country: FR (occurrence: FR)
  Receive Date: 20130125
  Receipt Date: 20130125
  Transmission Date: 20140127
  Serious: Yes (Hospitalization)
  Sender: FDA-Public Use
  Company Number: FR-B.I. PHARMACEUTICALS,INC./RIDGEFIELD-2013-FF-00215FF

PATIENT
  Age: 90 Year
  Sex: Male

DRUGS (7)
  1. PRADAXA [Suspect]
     Indication: ATRIAL FIBRILLATION
     Dosage: 220 MG
     Route: 048
  2. PRADAXA [Suspect]
     Dosage: 150 MG
     Route: 048
  3. HEMIGOXINE [Concomitant]
  4. LASILIX [Concomitant]
  5. TILDIEM [Concomitant]
  6. NOVONORM [Concomitant]
  7. EUPANTOL [Concomitant]

REACTIONS (7)
  - Chronic obstructive pulmonary disease [Recovered/Resolved]
  - Microlithiasis [Recovered/Resolved]
  - Cholestasis [Recovered/Resolved]
  - Fall [Recovered/Resolved]
  - Head injury [Recovered/Resolved]
  - Rectal haemorrhage [Not Recovered/Not Resolved]
  - Haematoma [Recovered/Resolved]
